FAERS Safety Report 8606064-3 (Version None)
Quarter: 2012Q3

REPORT INFORMATION
  Report Type: 
  Country: None (occurrence: None)
  Receive Date: 20120820
  Receipt Date: 19881024
  Transmission Date: 20120928
  Serious: Yes (Hospitalization)
  Sender: FDA-Public Use
  Company Number: US-ROCHE-1099905

PATIENT
  Sex: Male

DRUGS (7)
  1. LIDOCAINE [Concomitant]
  2. NITROGLYCERIN [Concomitant]
  3. MORPHINE [Concomitant]
  4. ATP [Concomitant]
     Route: 040
  5. ATP [Concomitant]
  6. ACTIVASE [Suspect]
     Indication: ACUTE MYOCARDIAL INFARCTION
  7. MORPHINE [Concomitant]
     Route: 042

REACTIONS (3)
  - EXTRASYSTOLES [None]
  - URINARY RETENTION [None]
  - CHEST DISCOMFORT [None]
